FAERS Safety Report 15858163 (Version 1)
Quarter: 2018Q4

REPORT INFORMATION
  Report Type: Spontaneous
  Country: US (occurrence: US)
  Receive Date: 20181228
  Receipt Date: 20181228
  Transmission Date: 20190205
  Serious: Yes (Disabling, Other)
  Sender: FDA-Public Use
  Company Number: None

PATIENT
  Age: 69 Year
  Sex: Female
  Weight: 77.11 kg

DRUGS (19)
  1. FLEXERIL [Concomitant]
     Active Substance: CYCLOBENZAPRINE HYDROCHLORIDE
  2. PROAIR RESPICLICK [Suspect]
     Active Substance: ALBUTEROL SULFATE
     Indication: ASTHMA
     Dosage: ?          QUANTITY:90 UG MICROGRAM(S);?
     Route: 048
     Dates: start: 20160912, end: 20160912
  3. AMLODIPINE BESYLATE. [Concomitant]
     Active Substance: AMLODIPINE BESYLATE
  4. THEOPHYLLINE [Concomitant]
     Active Substance: THEOPHYLLINE ANHYDROUS
  5. RESPIMAT [Concomitant]
  6. THEO 24 [Concomitant]
  7. SINGULAIR [Concomitant]
     Active Substance: MONTELUKAST SODIUM
  8. CALCIUM [Concomitant]
     Active Substance: CALCIUM
  9. PULMICORT FLEXHALER [Concomitant]
     Active Substance: BUDESONIDE
  10. ADVAIR DISKUS [Concomitant]
     Active Substance: FLUTICASONE PROPIONATE\SALMETEROL XINAFOATE
  11. BUPROPION SR [Concomitant]
     Active Substance: BUPROPION HYDROCHLORIDE
  12. VENTOLIN HFA [Concomitant]
     Active Substance: ALBUTEROL SULFATE
  13. VIT C W/ROSE HIPS [Concomitant]
  14. VITAMIN D3 [Concomitant]
     Active Substance: CHOLECALCIFEROL
  15. VITAMIN E [Concomitant]
     Active Substance: .ALPHA.-TOCOPHEROL
  16. VITAMIN B6 [Concomitant]
     Active Substance: PYRIDOXINE HYDROCHLORIDE
  17. VITAMIN B12 [Concomitant]
     Active Substance: CYANOCOBALAMIN
  18. ZANTAC [Concomitant]
     Active Substance: RANITIDINE HYDROCHLORIDE
  19. SPIRIVA [Concomitant]
     Active Substance: TIOTROPIUM BROMIDE MONOHYDRATE

REACTIONS (11)
  - Pulmonary fibrosis [None]
  - Burn oesophageal [None]
  - Laryngeal inflammation [None]
  - Laryngeal pain [None]
  - Pharyngeal erythema [None]
  - Product substitution issue [None]
  - Dysphagia [None]
  - Injury associated with device [None]
  - Throat irritation [None]
  - Gastrooesophageal reflux disease [None]
  - Upper respiratory tract irritation [None]

NARRATIVE: CASE EVENT DATE: 201609
